FAERS Safety Report 6328062-5 (Version None)
Quarter: 2009Q3

REPORT INFORMATION
  Report Type: 
  Country: None (occurrence: None)
  Receive Date: 20090825
  Receipt Date: 20080912
  Transmission Date: 20100115
  Serious: No
  Sender: FDA-Public Use
  Company Number: US-ABBOTT-08P-163-0476028-00

PATIENT
  Sex: Female
  Weight: 68.1 kg

DRUGS (2)
  1. SYNTHROID [Suspect]
     Indication: HYPOTHYROIDISM
     Route: 048
     Dates: start: 19940501
  2. CANDESARTAN CILEXETIL [Concomitant]
     Indication: BLOOD PRESSURE
     Route: 048
     Dates: start: 20050202

REACTIONS (2)
  - LIP SWELLING [None]
  - RASH [None]
